FAERS Safety Report 6524888 (Version 14)
Quarter: 2012Q4

REPORT INFORMATION
  Report Type: 
  Country: US (occurrence: US)
  Receive Date: 20080111
  Receipt Date: 20120926
  Transmission Date: 20130627
  Serious: Yes (Hospitalization, Other)
  Sender: FDA-Public Use
  Company Number: US-ROCHE-522919

PATIENT
  Age: 13 Year
  Sex: Male
  Weight: 58.1 kg

DRUGS (17)
  1. ACCUTANE [Suspect]
     Indication: ACNE
     Route: 048
     Dates: start: 199403, end: 19940819
  2. ACCUTANE [Suspect]
     Route: 048
     Dates: start: 19950123, end: 19950602
  3. ACCUTANE [Suspect]
     Dosage: VARIOUS DOSAGES
     Route: 048
     Dates: start: 19950701, end: 199601
  4. ACCUTANE [Suspect]
     Route: 048
     Dates: start: 19960901, end: 19970409
  5. ACCUTANE [Suspect]
     Route: 048
  6. ACCUTANE [Suspect]
     Route: 048
  7. ACCUTANE [Suspect]
     Route: 048
     Dates: start: 199907, end: 199908
  8. ACCUTANE [Suspect]
     Route: 048
     Dates: start: 19990824, end: 19991207
  9. ACCUTANE [Suspect]
     Route: 048
  10. ACCUTANE [Suspect]
     Route: 048
     Dates: start: 200006, end: 200006
  11. ACCUTANE [Suspect]
     Route: 048
  12. ACCUTANE [Suspect]
     Route: 048
     Dates: start: 20010807, end: 200112
  13. ACCUTANE [Suspect]
     Route: 048
     Dates: start: 200201, end: 20020508
  14. ACCUTANE [Suspect]
     Route: 048
     Dates: start: 200212, end: 20030102
  15. ACCUTANE [Suspect]
     Route: 048
     Dates: start: 20030201, end: 20030623
  16. CLARITIN [Concomitant]
     Indication: HYPERSENSITIVITY
     Route: 065
  17. ALLEGRA-D [Concomitant]
     Indication: HYPERSENSITIVITY
     Route: 065

REACTIONS (42)
  - Pancreatitis [Unknown]
  - Pleural effusion [Unknown]
  - Small intestinal obstruction [Unknown]
  - Anal abscess [Unknown]
  - Colitis ulcerative [Unknown]
  - Intestinal haemorrhage [Unknown]
  - Winged scapula [Unknown]
  - Rectal haemorrhage [Unknown]
  - Emotional distress [Not Recovered/Not Resolved]
  - Emotional disorder [Not Recovered/Not Resolved]
  - Blood triglycerides increased [Unknown]
  - Abdominal pain [Unknown]
  - Anaemia [Unknown]
  - Haematochezia [Unknown]
  - Faeces discoloured [Unknown]
  - Gastrointestinal disorder [Unknown]
  - Acne [Unknown]
  - Chest pain [Unknown]
  - Acne [Unknown]
  - Lip dry [Unknown]
  - Folliculitis [Unknown]
  - Dry eye [Unknown]
  - Pain of skin [Unknown]
  - Arthralgia [Unknown]
  - Eye pain [Unknown]
  - Ocular hyperaemia [Unknown]
  - Eczema [Unknown]
  - Dry skin [Unknown]
  - Bursitis [Unknown]
  - Fatigue [Unknown]
  - Hyperaesthesia [Unknown]
  - Musculoskeletal discomfort [Unknown]
  - Pharyngitis [Unknown]
  - Cellulitis [Unknown]
  - Stress [Unknown]
  - Muscle strain [Recovering/Resolving]
  - Anal fissure [Unknown]
  - Inflammatory bowel disease [Unknown]
  - Crohn^s disease [Unknown]
  - Pouchitis [Unknown]
  - Colitis [Unknown]
  - Dehydration [Unknown]
